FAERS Safety Report 11053678 (Version 2)
Quarter: 2015Q2

REPORT INFORMATION
  Report Type: Spontaneous
  Country: FR (occurrence: FR)
  Receive Date: 20150421
  Receipt Date: 20150512
  Transmission Date: 20150821
  Serious: Yes (Disabling, Other)
  Sender: FDA-Public Use
  Company Number: PHHY2012FR038745

PATIENT
  Age: 25 Year
  Sex: Male
  Weight: 70 kg

DRUGS (1)
  1. GILENYA [Suspect]
     Active Substance: FINGOLIMOD HYDROCHLORIDE
     Indication: MULTIPLE SCLEROSIS
     Dosage: 0.5 MG, QD
     Route: 048
     Dates: start: 20111212, end: 20120505

REACTIONS (5)
  - Iris adhesions [Unknown]
  - Vitreous disorder [Unknown]
  - Macular oedema [Unknown]
  - Visual acuity reduced [Unknown]
  - Eye inflammation [Unknown]

NARRATIVE: CASE EVENT DATE: 201201
